FAERS Safety Report 12649396 (Version 2)
Quarter: 2017Q1

REPORT INFORMATION
  Report Type: Report from Study
  Country: US (occurrence: US)
  Receive Date: 20160812
  Receipt Date: 20170211
  Transmission Date: 20170428
  Serious: No
  Sender: FDA-Public Use
  Company Number: PHEH2016US019534

PATIENT
  Sex: Female

DRUGS (3)
  1. COSENTYX [Suspect]
     Active Substance: SECUKINUMAB
     Indication: PSORIASIS
     Dosage: 300 MG/KG, ONCE EVERY 4 WEEK
     Route: 065
     Dates: start: 20151221
  2. BETAMETHASONE W/CALCIPOTRIOL [Concomitant]
     Indication: PRODUCT USED FOR UNKNOWN INDICATION
     Dosage: UNK
     Route: 065
  3. COSENTYX [Suspect]
     Active Substance: SECUKINUMAB
     Dosage: 150 UNK, QMO
     Route: 065

REACTIONS (3)
  - Nasopharyngitis [Unknown]
  - Injection site reaction [Unknown]
  - Bronchitis [Unknown]

NARRATIVE: CASE EVENT DATE: 201604
